FAERS Safety Report 18278781 (Version 2)
Quarter: 2020Q4

REPORT INFORMATION
  Report Type: Spontaneous
  Country: US (occurrence: US)
  Receive Date: 20200917
  Receipt Date: 20201007
  Transmission Date: 20210113
  Serious: Yes (Other)
  Sender: FDA-Public Use
  Company Number: US-ROCHE-2678686

PATIENT
  Sex: Female

DRUGS (1)
  1. ESBRIET [Suspect]
     Active Substance: PIRFENIDONE
     Indication: IDIOPATHIC PULMONARY FIBROSIS
     Dosage: THREE TIMES A DAY BY MOUTH
     Route: 048
     Dates: start: 20181115

REACTIONS (6)
  - Haematochezia [Unknown]
  - Vomiting [Unknown]
  - Decreased appetite [Unknown]
  - Chromaturia [Unknown]
  - Nausea [Unknown]
  - Fatigue [Unknown]
